FAERS Safety Report 11691202 (Version 1)
Quarter: 2015Q4

REPORT INFORMATION
  Report Type: Spontaneous
  Country: US (occurrence: US)
  Receive Date: 20151102
  Receipt Date: 20151102
  Transmission Date: 20160304
  Serious: No
  Sender: FDA-Public Use
  Company Number: US-PERRIGO-15US008686

PATIENT
  Age: 73 Year
  Sex: Female
  Weight: 52.15 kg

DRUGS (3)
  1. PRESCRIPTION MEDICATION FOR HYPERTHYROIDISM [Concomitant]
     Indication: HYPERTHYROIDISM
     Dosage: UNKNOWN, UNKNOWN
     Route: 048
     Dates: start: 2005
  2. PRESCRIPTION MEDICATION FOR ALLERGIES [Concomitant]
     Indication: HYPERSENSITIVITY
     Dosage: UNK
     Route: 065
  3. NICOTINE MINI MINT 4 MG 957 [Suspect]
     Active Substance: NICOTINE
     Indication: SMOKING CESSATION THERAPY
     Dosage: 4 MG, PRN
     Route: 002
     Dates: start: 20150818, end: 20150819

REACTIONS (1)
  - Hiccups [Recovered/Resolved]

NARRATIVE: CASE EVENT DATE: 20150818
